FAERS Safety Report 26111701 (Version 1)
Quarter: 2025Q4

REPORT INFORMATION
  Report Type: Spontaneous
  Country: AU (occurrence: AU)
  Receive Date: 20251202
  Receipt Date: 20251202
  Transmission Date: 20260117
  Serious: Yes (Hospitalization)
  Sender: ABBVIE
  Company Number: AU-ABBVIE-6571534

PATIENT
  Sex: Male
  Weight: 40 kg

DRUGS (2)
  1. RINVOQ [Suspect]
     Active Substance: UPADACITINIB
     Indication: Colitis ulcerative
     Dosage: MAINTENANCE DOSE
     Route: 048
  2. RINVOQ [Suspect]
     Active Substance: UPADACITINIB
     Indication: Colitis ulcerative
     Dosage: INDUCTION DOSE
     Route: 048

REACTIONS (4)
  - Clostridium difficile infection [Recovered/Resolved]
  - Colitis ulcerative [Not Recovered/Not Resolved]
  - Tooth infection [Unknown]
  - Therapeutic product effect decreased [Unknown]
